FAERS Safety Report 23050280 (Version 1)
Quarter: 2023Q4

REPORT INFORMATION
  Report Type: Spontaneous
  Country: US (occurrence: None)
  Receive Date: 20231009
  Receipt Date: 20231009
  Transmission Date: 20240110
  Serious: No
  Sender: FDA-Public Use
  Company Number: None

PATIENT
  Age: 54 Year
  Sex: Female
  Weight: 67.5 kg

DRUGS (10)
  1. PAXLOVID [Suspect]
     Active Substance: NIRMATRELVIR\RITONAVIR
     Indication: SARS-CoV-2 test positive
     Dosage: OTHER QUANTITY : 3 TABLET(S);?FREQUENCY : TWICE A DAY;?
     Route: 048
     Dates: start: 20230924, end: 20230928
  2. AMLODIPINE BESYLATE [Concomitant]
     Active Substance: AMLODIPINE BESYLATE
  3. DOTTI [Concomitant]
     Active Substance: ESTRADIOL
  4. LISINOPRIL [Concomitant]
     Active Substance: LISINOPRIL
  5. PROGESTERONE [Concomitant]
     Active Substance: PROGESTERONE
  6. IBUPROFEN [Concomitant]
     Active Substance: IBUPROFEN
  7. BENADRYL [Concomitant]
     Active Substance: DIPHENHYDRAMINE HYDROCHLORIDE
  8. BIOTIN [Concomitant]
     Active Substance: BIOTIN
  9. VITAMIN C [Concomitant]
     Active Substance: ASCORBIC ACID
  10. muti vitamin [Concomitant]

REACTIONS (1)
  - Taste disorder [None]

NARRATIVE: CASE EVENT DATE: 20230925
